FAERS Safety Report 24989752 (Version 1)
Quarter: 2025Q1

REPORT INFORMATION
  Report Type: Spontaneous
  Country: FR (occurrence: FR)
  Receive Date: 20250220
  Receipt Date: 20250220
  Transmission Date: 20250409
  Serious: Yes (Disabling, Congenital Anomaly, Other)
  Sender: CIPLA
  Company Number: FR-AFSSAPS-NC2025000174

PATIENT

DRUGS (2)
  1. VALGANCICLOVIR [Suspect]
     Active Substance: VALGANCICLOVIR
     Route: 064
     Dates: start: 20240215, end: 20240814
  2. VALACYCLOVIR HYDROCHLORIDE [Suspect]
     Active Substance: VALACYCLOVIR HYDROCHLORIDE
     Route: 064
     Dates: start: 20231222, end: 20240215

REACTIONS (2)
  - Deafness congenital [Not Recovered/Not Resolved]
  - Foetal exposure during pregnancy [Unknown]

NARRATIVE: CASE EVENT DATE: 20240215
